FAERS Safety Report 7309430-1 (Version None)
Quarter: 2011Q1

REPORT INFORMATION
  Report Type: 
  Country: None (occurrence: None)
  Receive Date: 20110223
  Receipt Date: 20110214
  Transmission Date: 20110831
  Serious: Yes (Hospitalization)
  Sender: FDA-Public Use
  Company Number: US-ASTRAZENECA-2011SE08595

PATIENT
  Age: 55 Year
  Sex: Female
  Weight: 71.7 kg

DRUGS (6)
  1. SEROQUEL [Suspect]
     Indication: INSOMNIA
     Route: 048
     Dates: start: 20070101
  2. EFFEXOR [Concomitant]
     Indication: BIPOLAR DISORDER
     Route: 048
  3. CLONAZAPAM [Concomitant]
     Indication: BIPOLAR DISORDER
     Route: 048
  4. SEROQUEL [Suspect]
     Indication: BIPOLAR DISORDER
     Route: 048
     Dates: start: 20070101
  5. CELEBREX [Concomitant]
     Indication: PAIN
     Route: 048
  6. VITAMINS AND IRON SUPPLEMENT [Concomitant]
     Route: 048

REACTIONS (9)
  - HIP ARTHROPLASTY [None]
  - INSOMNIA [None]
  - HEADACHE [None]
  - RHINORRHOEA [None]
  - PAIN [None]
  - TREMOR [None]
  - INCORRECT DOSE ADMINISTERED [None]
  - ANAEMIA [None]
  - DRUG DOSE OMISSION [None]
